FAERS Safety Report 8609046-0 (Version None)
Quarter: 2012Q3

REPORT INFORMATION
  Report Type: 
  Country: None (occurrence: None)
  Receive Date: 20120821
  Receipt Date: 20120813
  Transmission Date: 20120928
  Serious: Yes (Other)
  Sender: FDA-Public Use
  Company Number: GB-JNJFOC-20120511355

PATIENT
  Sex: Male
  Weight: 69 kg

DRUGS (2)
  1. DURAGESIC-100 [Suspect]
     Route: 062
  2. DURAGESIC-100 [Suspect]
     Indication: PAIN
     Dosage: APPLYING ONE AND A HALF PATCHES
     Route: 062

REACTIONS (10)
  - STRESS [None]
  - FEELING ABNORMAL [None]
  - PAIN [None]
  - INCORRECT DRUG ADMINISTRATION RATE [None]
  - WRONG TECHNIQUE IN DRUG USAGE PROCESS [None]
  - THERAPEUTIC RESPONSE DECREASED [None]
  - PRURITUS GENERALISED [None]
  - WITHDRAWAL SYNDROME [None]
  - ABDOMINAL PAIN [None]
  - DRUG ADMINISTRATION ERROR [None]
